FAERS Safety Report 9802336 (Version 1)
Quarter: 2014Q1

REPORT INFORMATION
  Report Type: Spontaneous
  Country: US (occurrence: US)
  Receive Date: 20140107
  Receipt Date: 20140107
  Transmission Date: 20141002
  Serious: No
  Sender: FDA-Public Use
  Company Number: US-PFIZER INC-2014003470

PATIENT
  Sex: Female

DRUGS (2)
  1. TOLTERODINE TARTRATE [Suspect]
  2. ASPIRIN [Suspect]

REACTIONS (1)
  - Drug hypersensitivity [Unknown]
